FAERS Safety Report 12958202 (Version 6)
Quarter: 2017Q2

REPORT INFORMATION
  Report Type: Report from Study
  Country: None (occurrence: US)
  Receive Date: 20161120
  Receipt Date: 20170626
  Transmission Date: 20170830
  Serious: Yes (Other)
  Sender: FDA-Public Use
  Company Number: US-ABBVIE-08P-163-0491388-00

PATIENT
  Age: 52 Year
  Sex: Female
  Weight: 69.92 kg

DRUGS (6)
  1. TURMERIC [Concomitant]
     Active Substance: HERBALS\TURMERIC
     Indication: PRODUCT USED FOR UNKNOWN INDICATION
  2. ADVIL [Concomitant]
     Active Substance: IBUPROFEN
     Indication: PRODUCT USED FOR UNKNOWN INDICATION
  3. HUMIRA [Suspect]
     Active Substance: ADALIMUMAB
     Indication: PSORIATIC ARTHROPATHY
     Route: 058
     Dates: start: 20080701, end: 20160525
  4. CEFADROXIL. [Concomitant]
     Active Substance: CEFADROXIL
     Indication: PRODUCT USED FOR UNKNOWN INDICATION
  5. DULOXETINE. [Concomitant]
     Active Substance: DULOXETINE
     Indication: PRODUCT USED FOR UNKNOWN INDICATION
  6. HUMIRA [Suspect]
     Active Substance: ADALIMUMAB
     Route: 058
     Dates: start: 201609

REACTIONS (33)
  - Cartilage hypertrophy [Recovered/Resolved]
  - Oedema peripheral [Not Recovered/Not Resolved]
  - Injection site erythema [Recovered/Resolved with Sequelae]
  - Musculoskeletal pain [Not Recovered/Not Resolved]
  - Perineurial cyst [Not Recovered/Not Resolved]
  - Injection site pruritus [Not Recovered/Not Resolved]
  - Respiratory tract congestion [Recovering/Resolving]
  - Fracture [Unknown]
  - Osteoarthritis [Recovered/Resolved]
  - Postoperative adhesion [Not Recovered/Not Resolved]
  - Sciatica [Not Recovered/Not Resolved]
  - Inflammation [Not Recovered/Not Resolved]
  - Paraesthesia [Recovering/Resolving]
  - Pain in extremity [Not Recovered/Not Resolved]
  - Intervertebral disc protrusion [Not Recovered/Not Resolved]
  - Intervertebral disc degeneration [Not Recovered/Not Resolved]
  - Injection site pruritus [Recovered/Resolved]
  - Back pain [Not Recovered/Not Resolved]
  - Nerve compression [Not Recovered/Not Resolved]
  - Injection site bruising [Not Recovered/Not Resolved]
  - Diarrhoea [Unknown]
  - Hypoaesthesia [Recovering/Resolving]
  - Injection site pain [Recovering/Resolving]
  - Weight decreased [Recovered/Resolved]
  - Cough [Recovering/Resolving]
  - Oral herpes [Unknown]
  - Injection site erythema [Recovered/Resolved]
  - Arthralgia [Not Recovered/Not Resolved]
  - Hypoaesthesia [Recovering/Resolving]
  - Injection site extravasation [Recovered/Resolved with Sequelae]
  - Rash macular [Recovered/Resolved with Sequelae]
  - Injection site urticaria [Recovered/Resolved with Sequelae]
  - Rhinorrhoea [Recovering/Resolving]

NARRATIVE: CASE EVENT DATE: 20081203
